FAERS Safety Report 20545345 (Version 2)
Quarter: 2023Q2

REPORT INFORMATION
  Report Type: Report from Study
  Country: CA (occurrence: CA)
  Receive Date: 20220303
  Receipt Date: 20230627
  Transmission Date: 20230722
  Serious: Yes (Death)
  Sender: FDA-Public Use
  Company Number: CA-HLS-202200435

PATIENT
  Age: 31 Year
  Sex: Male
  Weight: 109 kg

DRUGS (4)
  1. CLOZARIL [Suspect]
     Active Substance: CLOZAPINE
     Indication: Schizophrenia
     Dosage: 250 MG HS
     Route: 048
     Dates: start: 20180723, end: 20220221
  2. ATIVAN [Concomitant]
     Active Substance: LORAZEPAM
     Indication: Insomnia
     Dosage: 0.5 MG ONCE A DAY PRN
     Route: 048
     Dates: start: 20220217
  3. SEROQUEL [Concomitant]
     Active Substance: QUETIAPINE FUMARATE
     Indication: Anxiety
     Dosage: 50 MG LUNCH AND 25 MG BEDTIME
     Route: 048
     Dates: start: 20210517
  4. WELLBUTRIN SR [Concomitant]
     Active Substance: BUPROPION HYDROCHLORIDE
     Indication: Anxiety
     Dosage: 100 MG IN MORNING
     Route: 048
     Dates: start: 20210709

REACTIONS (1)
  - Death [Fatal]

NARRATIVE: CASE EVENT DATE: 20220220
